FAERS Safety Report 9189726 (Version 2)
Quarter: 2013Q3

REPORT INFORMATION
  Report Type: Spontaneous
  Country: US (occurrence: None)
  Receive Date: 20130322
  Receipt Date: 20130815
  Transmission Date: 20140515
  Serious: Yes (Hospitalization, Other)
  Sender: FDA-Public Use
  Company Number: ADR-2012-01527

PATIENT
  Sex: Male

DRUGS (1)
  1. BACLOFEN INTRATHECAL (BACLOFEN INJECTION) [Suspect]
     Indication: MUSCLE SPASTICITY

REACTIONS (8)
  - Device related infection [None]
  - Purulence [None]
  - Wound drainage [None]
  - Staphylococcal infection [None]
  - Delirium [None]
  - Loss of consciousness [None]
  - Renal failure [None]
  - Wound dehiscence [None]
